FAERS Safety Report 7342630-3 (Version None)
Quarter: 2011Q1

REPORT INFORMATION
  Report Type: 
  Country: None (occurrence: None)
  Receive Date: 20110310
  Receipt Date: 20100119
  Transmission Date: 20110831
  Serious: No
  Sender: FDA-Public Use
  Company Number: US-BAYER-201011848NA

PATIENT
  Sex: Female
  Weight: 87.075 kg

DRUGS (1)
  1. MIRENA [Suspect]
     Indication: CONTRACEPTION
     Dosage: 20 ?G/D, CONT
     Route: 015
     Dates: start: 20080101

REACTIONS (4)
  - VAGINAL HAEMORRHAGE [None]
  - BREAST DISCHARGE [None]
  - BREAST PAIN [None]
  - ABDOMINAL PAIN LOWER [None]
